FAERS Safety Report 6165860-5 (Version None)
Quarter: 2009Q2

REPORT INFORMATION
  Report Type: 
  Country: None (occurrence: None)
  Receive Date: 20090423
  Receipt Date: 20090413
  Transmission Date: 20091009
  Serious: Yes (Hospitalization)
  Sender: FDA-Public Use
  Company Number: US-BAUSCH-2009BL001659

PATIENT
  Age: 50 Year
  Sex: Male

DRUGS (9)
  1. MINOXIDIL [Suspect]
     Indication: HYPERTENSION
     Route: 048
  2. CEPHALEXIN [Concomitant]
     Indication: OROPHARYNGEAL PAIN
     Route: 048
  3. NIFEDIPINE [Concomitant]
     Indication: DRUG USE FOR UNKNOWN INDICATION
     Route: 048
  4. CLONIDINE [Concomitant]
     Indication: DRUG USE FOR UNKNOWN INDICATION
     Route: 048
  5. PHENYTOIN [Concomitant]
     Indication: CONVULSION
     Route: 048
     Dates: start: 20010101
  6. RANITIDINE [Concomitant]
     Indication: GASTROOESOPHAGEAL REFLUX DISEASE
     Route: 048
  7. METOPROLOL TARTRATE [Concomitant]
     Indication: DRUG USE FOR UNKNOWN INDICATION
     Route: 048
  8. ASPIRIN [Concomitant]
     Indication: DRUG USE FOR UNKNOWN INDICATION
     Route: 048
  9. HYDROXYZINE [Concomitant]
     Indication: DRUG USE FOR UNKNOWN INDICATION
     Route: 048

REACTIONS (3)
  - HEPATITIS C [None]
  - PANCYTOPENIA [None]
  - STEVENS-JOHNSON SYNDROME [None]
